FAERS Safety Report 5476777-3 (Version None)
Quarter: 2007Q4

REPORT INFORMATION
  Report Type: 
  Country: None (occurrence: None)
  Receive Date: 20071004
  Receipt Date: 20070926
  Transmission Date: 20080405
  Serious: Yes (Life-Threatening)
  Sender: FDA-Public Use
  Company Number: DE-JNJFOC-20070905114

PATIENT
  Sex: Female
  Weight: 65 kg

DRUGS (2)
  1. TOPAMAX [Suspect]
     Indication: MIGRAINE PROPHYLAXIS
     Route: 048
  2. CONTRACEPTIVE NOS [Concomitant]
     Indication: CONTRACEPTION
     Route: 065

REACTIONS (3)
  - NEUTROPENIA [None]
  - PNEUMONIA PRIMARY ATYPICAL [None]
  - THROMBOCYTOPENIA [None]
